FAERS Safety Report 5928913-X (Version None)
Quarter: 2008Q4

REPORT INFORMATION
  Report Type: 
  Country: None (occurrence: None)
  Receive Date: 20081024
  Receipt Date: 20081023
  Transmission Date: 20090506
  Serious: Yes (Hospitalization)
  Sender: FDA-Public Use
  Company Number: PHHO2001ES04279

PATIENT
  Sex: Male
  Weight: 73.5 kg

DRUGS (5)
  1. NEORAL [Suspect]
     Indication: LIVER TRANSPLANT
     Route: 048
     Dates: start: 20000709
  2. PLACEBO PLACEBO [Suspect]
     Indication: LIVER TRANSPLANT
     Dosage: 20 MG, ONCE/SINGLE
     Route: 042
     Dates: start: 20000710, end: 20000710
  3. PLACEBO PLACEBO [Suspect]
     Dosage: 20 MG, ONCE/SINGLE
     Route: 042
     Dates: start: 20000714, end: 20000714
  4. PREDNISONE TAB [Suspect]
     Indication: LIVER TRANSPLANT
     Dates: start: 20000709
  5. METHYLPREDNISOLONE 16MG TAB [Suspect]
     Indication: LIVER TRANSPLANT
     Dates: start: 20000709

REACTIONS (1)
  - HIP FRACTURE [None]
